FAERS Safety Report 21298791 (Version 1)
Quarter: 2022Q3

REPORT INFORMATION
  Report Type: Report from Study
  Country: DE (occurrence: DE)
  Receive Date: 20220906
  Receipt Date: 20220906
  Transmission Date: 20221026
  Serious: Yes (Hospitalization)
  Sender: FDA-Public Use
  Company Number: DE-TEVA-2022-DE-2071225

PATIENT
  Sex: Male

DRUGS (10)
  1. CELECOXIB [Suspect]
     Active Substance: CELECOXIB
     Indication: Psoriatic arthropathy
     Route: 065
     Dates: start: 20190701
  2. CELECOXIB [Suspect]
     Active Substance: CELECOXIB
     Indication: Spinal osteoarthritis
     Route: 065
     Dates: start: 20190401, end: 20190814
  3. DICLOFENAC [Suspect]
     Active Substance: DICLOFENAC
     Indication: Psoriatic arthropathy
     Route: 065
     Dates: start: 20200401, end: 20200407
  4. DICLOFENAC [Suspect]
     Active Substance: DICLOFENAC
     Indication: Spinal osteoarthritis
  5. HULIO [Suspect]
     Active Substance: ADALIMUMAB-FKJP
     Indication: Spinal osteoarthritis
     Route: 065
  6. HULIO [Suspect]
     Active Substance: ADALIMUMAB-FKJP
     Indication: Psoriatic arthropathy
     Route: 065
     Dates: start: 20190701
  7. HULIO [Suspect]
     Active Substance: ADALIMUMAB-FKJP
     Route: 065
     Dates: start: 20191104
  8. HULIO [Suspect]
     Active Substance: ADALIMUMAB-FKJP
     Route: 065
     Dates: start: 20190701, end: 20200201
  9. HULIO [Suspect]
     Active Substance: ADALIMUMAB-FKJP
     Route: 065
     Dates: start: 20200315
  10. HULIO [Suspect]
     Active Substance: ADALIMUMAB-FKJP
     Route: 065
     Dates: start: 20210428

REACTIONS (1)
  - Sinusitis [Recovered/Resolved]

NARRATIVE: CASE EVENT DATE: 20200401
